FAERS Safety Report 4852380-0 (Version None)
Quarter: 2005Q4

REPORT INFORMATION
  Report Type: 
  Country: None (occurrence: None)
  Receive Date: 20051123
  Receipt Date: 20050128
  Transmission Date: 20060501
  Serious: Yes (Hospitalization)
  Sender: FDA-Public Use
  Company Number: US-JNJFOC-20040801641

PATIENT
  Age: 42 Year
  Sex: Female
  Weight: 97.0698 kg

DRUGS (5)
  1. LEVAQUIN [Suspect]
     Indication: SURGERY
     Dosage: 500 MG, 1 IN 1 DAY, INTRAVENOUS
     Route: 042
     Dates: start: 20040723, end: 20040723
  2. SINGULAIR [Concomitant]
  3. ALLEGRA D (ALLEGRA D) [Concomitant]
  4. STEROID (CORTICOSTEROID NOS) [Concomitant]
  5. PROVENTIL [Concomitant]

REACTIONS (2)
  - INFUSION SITE REACTION [None]
  - URTICARIA [None]
